FAERS Safety Report 7465755-0 (Version None)
Quarter: 2011Q2

REPORT INFORMATION
  Report Type: 
  Country: None (occurrence: None)
  Receive Date: 20110509
  Receipt Date: 20110421
  Transmission Date: 20111010
  Serious: No
  Sender: FDA-Public Use
  Company Number: US-B.I. PHARMACEUTICALS,INC./RIDGEFIELD-2010-BP-13018BP

PATIENT
  Sex: Male
  Weight: 88.9 kg

DRUGS (7)
  1. ATENOLOL [Concomitant]
     Indication: HEART RATE INCREASED
     Dosage: 100 MG
     Dates: start: 20070101
  2. PLAVIX [Concomitant]
     Indication: STENT PLACEMENT
  3. ZOCOR [Concomitant]
     Indication: BLOOD CHOLESTEROL INCREASED
     Dosage: 40 MG
  4. FLOMAX [Suspect]
     Indication: PROSTATITIS
  5. PLAVIX [Concomitant]
     Indication: ANGIOPLASTY
     Dosage: 75 MG
  6. BENAZAPRIL [Concomitant]
     Indication: HYPERTENSION
     Dosage: 20 MG
  7. FLOMAX [Suspect]
     Indication: BENIGN PROSTATIC HYPERPLASIA
     Dosage: 0.4 MG
     Route: 048
     Dates: start: 20091116, end: 20101116

REACTIONS (2)
  - GYNAECOMASTIA [None]
  - NIPPLE PAIN [None]
